FAERS Safety Report 7716336-2 (Version None)
Quarter: 2011Q3

REPORT INFORMATION
  Report Type: 
  Country: None (occurrence: None)
  Receive Date: 20110829
  Receipt Date: 20110819
  Transmission Date: 20111222
  Serious: Yes (Hospitalization, Other)
  Sender: FDA-Public Use
  Company Number: PHHY2011US45451

PATIENT
  Sex: Female

DRUGS (1)
  1. GILENYA [Suspect]
     Indication: RELAPSING-REMITTING MULTIPLE SCLEROSIS
     Dosage: UNK UKN, UNK
     Route: 048
     Dates: start: 20080201

REACTIONS (8)
  - DEPRESSION [None]
  - EMOTIONAL DISTRESS [None]
  - DIZZINESS [None]
  - LOSS OF CONSCIOUSNESS [None]
  - AURA [None]
  - PARAESTHESIA [None]
  - CONVULSION [None]
  - SYNCOPE [None]
